FAERS Safety Report 21691547 (Version 2)
Quarter: 2022Q4

REPORT INFORMATION
  Report Type: Report from Study
  Country: CN (occurrence: CN)
  Receive Date: 20221207
  Receipt Date: 20221213
  Transmission Date: 20230113
  Serious: Yes (Other)
  Sender: FDA-Public Use
  Company Number: CN-BRISTOL-MYERS SQUIBB COMPANY-2022-114003

PATIENT
  Age: 74 Year
  Sex: Male
  Weight: 85.5 kg

DRUGS (1)
  1. VIDAZA [Suspect]
     Active Substance: AZACITIDINE
     Indication: Chronic myelomonocytic leukaemia
     Route: 058
     Dates: start: 20200229, end: 20200628

REACTIONS (17)
  - Dizziness [Unknown]
  - Cholelithiasis [Unknown]
  - Platelet count decreased [Recovered/Resolved]
  - Chest discomfort [Recovered/Resolved]
  - Swelling [Recovered/Resolved]
  - Neck pain [Unknown]
  - Dysphagia [Unknown]
  - Hyperpyrexia [Recovered/Resolved]
  - Cerebral ischaemia [Unknown]
  - Dysstasia [Recovered/Resolved]
  - Fall [Recovered/Resolved]
  - Constipation [Unknown]
  - Myelosuppression [Unknown]
  - Hepatic steatosis [Unknown]
  - Arteriosclerosis coronary artery [Unknown]
  - Pneumonia [Recovered/Resolved]
  - Aortic arteriosclerosis [Unknown]

NARRATIVE: CASE EVENT DATE: 20200229
